FAERS Safety Report 16335345 (Version 1)
Quarter: 2019Q2

REPORT INFORMATION
  Report Type: Spontaneous
  Country: US (occurrence: US)
  Receive Date: 20190414
  Receipt Date: 20190414
  Transmission Date: 20190711
  Serious: No
  Sender: FDA-Public Use
  Company Number: None

PATIENT
  Age: 21 Year
  Sex: Female

DRUGS (1)
  1. SOFOSBUVIR / VELPATASVIR 400-100MG [Suspect]
     Active Substance: SOFOSBUVIR\VELPATASVIR
     Route: 047
     Dates: start: 20190312

REACTIONS (3)
  - Abdominal pain [None]
  - Nausea [None]
  - Vomiting [None]

NARRATIVE: CASE EVENT DATE: 20190414
